FAERS Safety Report 15647905 (Version 1)
Quarter: 2018Q4

REPORT INFORMATION
  Report Type: Spontaneous
  Country: TR (occurrence: TR)
  Receive Date: 20181122
  Receipt Date: 20181122
  Transmission Date: 20190205
  Serious: Yes (Other)
  Sender: FDA-Public Use
  Company Number: TR-MACLEODS PHARMACEUTICALS US LTD-MAC2018018733

PATIENT

DRUGS (4)
  1. PRAMIPEXOLE. [Suspect]
     Active Substance: PRAMIPEXOLE
     Indication: PARKINSON^S DISEASE
     Dosage: 1.125 MILLIGRAM, QD DURING ONSET OF PREGNANCY
     Route: 065
  2. PRAMIPEXOLE. [Suspect]
     Active Substance: PRAMIPEXOLE
     Dosage: 1.125 MILLIGRAM, QD DURING FIRST TRIMESTER
     Route: 065
  3. RASAGILINE. [Suspect]
     Active Substance: RASAGILINE
     Indication: PARKINSON^S DISEASE
     Dosage: 1 MILLIGRAM, QD, DURING ONSET OF PREGNANCY
     Route: 065
  4. RASAGILINE. [Suspect]
     Active Substance: RASAGILINE
     Dosage: 1 MILLIGRAM, QD, DURING FIRST TRIMESTER (0-5 WEEKS)
     Route: 065

REACTIONS (3)
  - Caesarean section [Unknown]
  - Parkinsonism [Unknown]
  - Exposure during pregnancy [Unknown]
